FAERS Safety Report 9668738 (Version 1)
Quarter: 2013Q4

REPORT INFORMATION
  Report Type: Spontaneous
  Country: US (occurrence: US)
  Receive Date: 20131105
  Receipt Date: 20131105
  Transmission Date: 20140711
  Serious: No
  Sender: FDA-Public Use
  Company Number: US-009507513-1311USA001299

PATIENT
  Age: 33 Year
  Sex: Female

DRUGS (1)
  1. NUVARING [Suspect]
     Indication: MENSTRUAL CYCLE MANAGEMENT
     Dosage: 1 RING FOR 4 WEEKS
     Route: 067
     Dates: start: 20131017

REACTIONS (2)
  - Haemorrhage [Unknown]
  - Inappropriate schedule of drug administration [Unknown]
